FAERS Safety Report 15372771 (Version 1)
Quarter: 2018Q3

REPORT INFORMATION
  Report Type: Report from Study
  Country: IT (occurrence: IT)
  Receive Date: 20180912
  Receipt Date: 20180912
  Transmission Date: 20181010
  Serious: Yes (Other)
  Sender: FDA-Public Use
  Company Number: IT-TEVA-2018-IT-953822

PATIENT
  Age: 22 Year
  Sex: Male

DRUGS (1)
  1. AMOXICILLIN SODIUM [Suspect]
     Active Substance: AMOXICILLIN SODIUM
     Indication: ANTIBIOTIC PROPHYLAXIS
     Route: 048
     Dates: start: 20180821

REACTIONS (3)
  - Constipation [Recovering/Resolving]
  - Asthenia [Recovering/Resolving]
  - Abdominal pain [Recovering/Resolving]

NARRATIVE: CASE EVENT DATE: 20180824
